FAERS Safety Report 4865337-0 (Version None)
Quarter: 2005Q4

REPORT INFORMATION
  Report Type: 
  Country: None (occurrence: None)
  Receive Date: 20051223
  Receipt Date: 20051215
  Transmission Date: 20060501
  Serious: No
  Sender: FDA-Public Use
  Company Number: 2005SE07235

PATIENT

DRUGS (1)
  1. SEROQUEL [Suspect]
     Dosage: 200+400 MG DAILY
     Route: 048

REACTIONS (1)
  - LEUKOPENIA [None]
